FAERS Safety Report 18217282 (Version 1)
Quarter: 2020Q3

REPORT INFORMATION
  Report Type: Spontaneous
  Country: US (occurrence: US)
  Receive Date: 20200831
  Receipt Date: 20200831
  Transmission Date: 20201103
  Serious: Yes (Hospitalization)
  Sender: FDA-Public Use
  Company Number: None

PATIENT
  Age: 75 Year
  Sex: Male
  Weight: 100.7 kg

DRUGS (1)
  1. METHYLPREDNISOLONE (METHYLPREDNISOLONE 4MG TAB) [Suspect]
     Active Substance: METHYLPREDNISOLONE
     Indication: ASTHMA
     Route: 048
     Dates: start: 20200604, end: 20200605

REACTIONS (1)
  - Anaphylactic reaction [None]

NARRATIVE: CASE EVENT DATE: 20200605
